FAERS Safety Report 8015217 (Version 9)
Quarter: 2013Q1

REPORT INFORMATION
  Report Type: Spontaneous
  Country: US (occurrence: US)
  Receive Date: 20110629
  Receipt Date: 20130204
  Transmission Date: 20140127
  Serious: Yes (Hospitalization, Disabling, Other)
  Sender: FDA-Public Use
  Company Number: US-009507513-1106USA02726

PATIENT
  Sex: Female
  Weight: 63.5 kg

DRUGS (8)
  1. FOSAMAX [Suspect]
     Indication: OSTEOPOROSIS
     Route: 048
     Dates: start: 1996
  2. FOSAMAX [Suspect]
     Dosage: 70 MG, QW
     Route: 048
     Dates: start: 20001211, end: 20050922
  3. FOSAMAX [Suspect]
     Dosage: 70 MG, QW
     Route: 048
     Dates: end: 20110501
  4. FOSAMAX PLUS D [Suspect]
     Indication: OSTEOPOROSIS
     Dosage: 70 MG, QW
     Route: 048
     Dates: start: 20061226, end: 20090119
  5. BONIVA [Suspect]
     Indication: OSTEOPOROSIS
     Dosage: 150 MG, UNK
     Route: 048
     Dates: start: 20050819, end: 20070211
  6. ACTONEL [Suspect]
     Indication: OSTEOPOROSIS
     Dosage: 150 MG, UNK
     Route: 048
     Dates: start: 20090105, end: 20110730
  7. LIPITOR [Concomitant]
     Indication: BLOOD CHOLESTEROL INCREASED
     Route: 048
     Dates: start: 20020310, end: 20120219
  8. SYNTHROID [Concomitant]
     Indication: HYPOTHYROIDISM
     Route: 048
     Dates: start: 20020108, end: 20111214

REACTIONS (49)
  - Femur fracture [Recovering/Resolving]
  - Fall [Recovering/Resolving]
  - Wrist fracture [Recovering/Resolving]
  - Rib fracture [Recovering/Resolving]
  - Blood disorder [Recovering/Resolving]
  - Femur fracture [Recovering/Resolving]
  - Atelectasis [Unknown]
  - Dysthymic disorder [Unknown]
  - Oxygen saturation decreased [Unknown]
  - Body temperature increased [Recovered/Resolved]
  - Personality disorder [Unknown]
  - Adjustment disorder with anxiety [Unknown]
  - Gastric disorder [Unknown]
  - Bone disorder [Unknown]
  - Hepatic lesion [Unknown]
  - Femur fracture [Recovering/Resolving]
  - Weight increased [Unknown]
  - Vitamin D deficiency [Unknown]
  - Gastric polyps [Unknown]
  - Hiatus hernia [Unknown]
  - Treatment noncompliance [Unknown]
  - Wrist fracture [Unknown]
  - Wound infection staphylococcal [Recovering/Resolving]
  - Atrophy [Unknown]
  - Weight increased [Unknown]
  - Sinusitis [Unknown]
  - Paraesthesia [Unknown]
  - Infection [Recovered/Resolved]
  - Eye infection [Recovered/Resolved]
  - Inflammation [Recovered/Resolved]
  - Infection [Unknown]
  - Hypersensitivity [Not Recovered/Not Resolved]
  - Dysphagia [Recovering/Resolving]
  - Gastrooesophageal reflux disease [Not Recovered/Not Resolved]
  - Limb discomfort [Unknown]
  - Pain in extremity [Unknown]
  - Constipation [Unknown]
  - Incision site cellulitis [Unknown]
  - Chest X-ray abnormal [Unknown]
  - Osteoarthritis [Not Recovered/Not Resolved]
  - Pyrexia [Unknown]
  - Pneumonia bacterial [Unknown]
  - Phlebitis [Unknown]
  - Back pain [Unknown]
  - Anaemia [Unknown]
  - Atelectasis [Unknown]
  - Ligament sprain [Unknown]
  - Oedema peripheral [Unknown]
  - Foot fracture [Recovering/Resolving]
